FAERS Safety Report 6278372-5 (Version None)
Quarter: 2009Q4

REPORT INFORMATION
  Report Type: 
  Country: None (occurrence: None)
  Receive Date: 20090722
  Receipt Date: 20090713
  Transmission Date: 20100525
  Serious: Yes (Other)
  Sender: FDA-Public Use
  Company Number: JP-ASTRAZENECA-2009SE02492

PATIENT
  Age: 30 Year
  Sex: Female
  Weight: 60 kg

DRUGS (8)
  1. XYLOCAINE [Suspect]
     Indication: LOCAL ANAESTHESIA
     Dosage: DOSE UNKNOWN
     Route: 065
     Dates: start: 20090605, end: 20090605
  2. MARCAINE [Suspect]
     Indication: SPINAL ANAESTHESIA
     Dosage: DOSE UNKNOWN
     Route: 029
     Dates: start: 20090605, end: 20090605
  3. FLUMARIN [Suspect]
     Indication: ANAESTHETIC PREMEDICATION
     Route: 041
     Dates: start: 20090605, end: 20090605
  4. ATROPINE SULFATE [Suspect]
     Indication: ANAESTHETIC PREMEDICATION
     Route: 048
     Dates: start: 20090605, end: 20090605
  5. MORPHINE [Suspect]
     Indication: SPINAL ANAESTHESIA
     Dosage: DOSE UNKNOWN
     Route: 029
     Dates: start: 20090605, end: 20090605
  6. METENARIN [Suspect]
     Route: 042
     Dates: start: 20090605, end: 20090605
  7. PROSTARMON E [Suspect]
     Route: 042
     Dates: start: 20090605, end: 20090605
  8. OXYTOCIN [Suspect]
     Route: 041
     Dates: start: 20090605, end: 20090605

REACTIONS (1)
  - ANAPHYLACTIC SHOCK [None]
